FAERS Safety Report 9188475 (Version 5)
Quarter: 2017Q2

REPORT INFORMATION
  Report Type: Spontaneous
  Country: US (occurrence: US)
  Receive Date: 20130325
  Receipt Date: 20170410
  Transmission Date: 20170830
  Serious: Yes (Hospitalization, Other)
  Sender: FDA-Public Use
  Company Number: US-009507513-1303USA009699

PATIENT
  Sex: Male
  Weight: 74.38 kg

DRUGS (2)
  1. PROPECIA [Suspect]
     Active Substance: FINASTERIDE
     Indication: ANDROGENETIC ALOPECIA
     Dosage: 1 MG, QD
     Route: 048
     Dates: start: 2006
  2. PROPECIA [Suspect]
     Active Substance: FINASTERIDE
     Indication: ALOPECIA

REACTIONS (17)
  - Adjustment disorder with depressed mood [Unknown]
  - Appendicectomy [Unknown]
  - Sexual dysfunction [Not Recovered/Not Resolved]
  - Weight decreased [Unknown]
  - Cognitive disorder [Not Recovered/Not Resolved]
  - Sexual dysfunction [Not Recovered/Not Resolved]
  - Knee operation [Unknown]
  - Erectile dysfunction [Unknown]
  - Limb injury [Unknown]
  - Disturbance in attention [Unknown]
  - Anxiety [Unknown]
  - Tinea infection [Unknown]
  - Knee operation [Unknown]
  - Depression [Not Recovered/Not Resolved]
  - Fatigue [Unknown]
  - Limb operation [Unknown]
  - Pterygium [Unknown]

NARRATIVE: CASE EVENT DATE: 2006
